FAERS Safety Report 9293517 (Version 2)
Quarter: 2013Q2

REPORT INFORMATION
  Report Type: Spontaneous
  Country: JP (occurrence: JP)
  Receive Date: 20130516
  Receipt Date: 20130523
  Transmission Date: 20140414
  Serious: Yes (Other)
  Sender: FDA-Public Use
  Company Number: PHHY2013JP048778

PATIENT
  Age: 45 Year
  Sex: Female
  Weight: 48 kg

DRUGS (3)
  1. CARBOPLATIN SANDOZ [Suspect]
     Dosage: 550MG/BODY
  2. PACLITAXEL [Suspect]
     Dosage: 230MG/BODY
  3. WARFARIN [Concomitant]

REACTIONS (4)
  - Venous thrombosis limb [Unknown]
  - Arthralgia [Recovered/Resolved]
  - Oedema peripheral [Recovered/Resolved]
  - Disease progression [Unknown]
